FAERS Safety Report 8556767-4 (Version None)
Quarter: 2012Q3

REPORT INFORMATION
  Report Type: 
  Country: None (occurrence: None)
  Receive Date: 20120726
  Receipt Date: 20120726
  Transmission Date: 20120928
  Serious: Yes (Other)
  Sender: FDA-Public Use
  Company Number: None

PATIENT
  Sex: Male

DRUGS (2)
  1. PREDNISONE [Concomitant]
  2. GABAPENTIN [Suspect]
     Indication: INTERVERTEBRAL DISC PROTRUSION
     Dosage: 300 MG, TWICE A DAY, PO
     Route: 048
     Dates: start: 20120720, end: 20120721

REACTIONS (6)
  - SPEECH DISORDER [None]
  - DYSPNOEA [None]
  - MUSCLE TWITCHING [None]
  - TREMOR [None]
  - RESTLESSNESS [None]
  - IRRITABILITY [None]
